FAERS Safety Report 11231189 (Version 4)
Quarter: 2015Q4

REPORT INFORMATION
  Report Type: Report from Study
  Country: BR (occurrence: BR)
  Receive Date: 20150701
  Receipt Date: 20151203
  Transmission Date: 20160304
  Serious: Yes (Other)
  Sender: FDA-Public Use
  Company Number: PHHY2015BR078185

PATIENT
  Age: 32 Year
  Sex: Male
  Weight: 64 kg

DRUGS (4)
  1. EXJADE [Suspect]
     Active Substance: DEFERASIROX
     Indication: THALASSAEMIA BETA
     Dosage: 30 MG/KG, QD (4 TABLETS OF 500 MG)
     Route: 048
     Dates: start: 2010
  2. CARBAMAZEPINE. [Concomitant]
     Active Substance: CARBAMAZEPINE
     Indication: SEIZURE
  3. CALCIUM [Concomitant]
     Active Substance: CALCIUM
     Indication: PRODUCT USED FOR UNKNOWN INDICATION
     Route: 065
  4. EXJADE [Suspect]
     Active Substance: DEFERASIROX
     Dosage: 40 MG/KG, QD (2500 MG DAILY)
     Route: 048

REACTIONS (8)
  - Arthralgia [Unknown]
  - Hypersomnia [Unknown]
  - Osteopenia [Recovering/Resolving]
  - Speech disorder [Unknown]
  - Serum ferritin increased [Recovering/Resolving]
  - Epilepsy [Unknown]
  - Mood altered [Unknown]
  - Aggression [Unknown]

NARRATIVE: CASE EVENT DATE: 20150310
